FAERS Safety Report 6901415-X (Version None)
Quarter: 2010Q3

REPORT INFORMATION
  Report Type: 
  Country: None (occurrence: None)
  Receive Date: 20100803
  Receipt Date: 20080125
  Transmission Date: 20110219
  Serious: No
  Sender: FDA-Public Use
  Company Number: US-PFIZER INC-2008008478

PATIENT
  Sex: Male
  Weight: 115.45 kg

DRUGS (3)
  1. LYRICA [Suspect]
     Indication: HERPES ZOSTER
     Dates: start: 20070501
  2. HYDROCORTISONE [Suspect]
     Indication: PRURITUS
  3. VYTORIN [Concomitant]
     Indication: BLOOD CHOLESTEROL INCREASED

REACTIONS (4)
  - DIZZINESS [None]
  - PAIN [None]
  - PARAESTHESIA [None]
  - PRURITUS [None]
